FAERS Safety Report 20333916 (Version 1)
Quarter: 2022Q1

REPORT INFORMATION
  Report Type: Spontaneous
  Country: PT (occurrence: PT)
  Receive Date: 20220113
  Receipt Date: 20220113
  Transmission Date: 20220423
  Serious: Yes (Other)
  Sender: FDA-Public Use
  Company Number: None

PATIENT
  Age: 47 Year
  Sex: Female
  Weight: 60 kg

DRUGS (3)
  1. OCTREOTIDE [Suspect]
     Active Substance: OCTREOTIDE
     Indication: Acromegaly
     Dosage: 20MG IM EVERY 5 WEEKS, TEVA DEPOT
     Route: 030
     Dates: start: 20210913
  2. Serenal [Concomitant]
     Indication: Insomnia
     Dosage: 1/2 COMP SOS
     Route: 048
  3. LEVOTHYROXINE SODIUM [Concomitant]
     Active Substance: LEVOTHYROXINE SODIUM
     Dosage: FAST, 0.1 MG
     Route: 048

REACTIONS (3)
  - Injection site induration [Recovered/Resolved with Sequelae]
  - Injection site haematoma [Recovered/Resolved with Sequelae]
  - Injection site abscess [Recovered/Resolved with Sequelae]

NARRATIVE: CASE EVENT DATE: 20210914
